FAERS Safety Report 8286223-2 (Version None)
Quarter: 2012Q2

REPORT INFORMATION
  Report Type: 
  Country: None (occurrence: None)
  Receive Date: 20120416
  Receipt Date: 20120411
  Transmission Date: 20120825
  Serious: Yes (Other)
  Sender: FDA-Public Use
  Company Number: US-PFIZER INC-2011210142

PATIENT
  Sex: Female
  Weight: 76 kg

DRUGS (9)
  1. CHANTIX [Suspect]
     Indication: SMOKING CESSATION THERAPY
     Dosage: 0.5 MG, 1X/DAY
     Route: 048
  2. FOSAMAX [Concomitant]
     Dosage: UNK
  3. COREG [Concomitant]
     Indication: HYPERTENSION
     Dosage: UNK
  4. VASOTEC [Concomitant]
     Indication: HYPERTENSION
     Dosage: UNK
  5. CHANTIX [Suspect]
     Dosage: 1 MG, 2X/DAY
     Route: 048
  6. TYLENOL (CAPLET) [Concomitant]
     Indication: STRESS
     Dosage: UNK
  7. LISINOPRIL [Concomitant]
     Indication: HYPERTENSION
     Dosage: 40 MG, UNK
  8. DIOVAN [Concomitant]
     Indication: HYPERTENSION
     Dosage: UNK
  9. XANAX [Concomitant]
     Indication: STRESS
     Dosage: UNK

REACTIONS (6)
  - APHONIA [None]
  - NAUSEA [None]
  - ABDOMINAL DISCOMFORT [None]
  - VOMITING [None]
  - MALAISE [None]
  - DIABETES MELLITUS [None]
